FAERS Safety Report 6543298-6 (Version None)
Quarter: 2010Q1

REPORT INFORMATION
  Report Type: 
  Country: None (occurrence: None)
  Receive Date: 20100120
  Receipt Date: 20100107
  Transmission Date: 20100710
  Serious: Yes (Hospitalization, Other)
  Sender: FDA-Public Use
  Company Number: IL-PFIZER INC-2009301000

PATIENT
  Age: 38 Year
  Sex: Male

DRUGS (6)
  1. GEODON [Suspect]
     Indication: SCHIZOPHRENIA
     Dosage: 80 MG, 2X/DAY
     Route: 048
  2. TOPAMAX [Suspect]
     Dosage: UNK
  3. ZYPREXA [Concomitant]
     Dosage: 10 MG, UNK
  4. FAVOXIL [Concomitant]
     Dosage: 200 MG, UNK
  5. LEPONEX ^NOVARTIS^ [Concomitant]
     Dosage: 600 MG, UNK
  6. CITALOPRAM HYDROBROMIDE [Concomitant]
     Dosage: 20 MG, UNK

REACTIONS (3)
  - DELIRIUM [None]
  - MAJOR DEPRESSION [None]
  - SUICIDE ATTEMPT [None]
